FAERS Safety Report 20804803 (Version 1)
Quarter: 2022Q2

REPORT INFORMATION
  Report Type: Spontaneous
  Country: US (occurrence: US)
  Receive Date: 20220509
  Receipt Date: 20220509
  Transmission Date: 20220720
  Serious: No
  Sender: FDA-Public Use
  Company Number: US-PFIZER INC-2021252255

PATIENT
  Age: 73 Year
  Sex: Female

DRUGS (1)
  1. COLESTID [Suspect]
     Active Substance: COLESTIPOL HYDROCHLORIDE
     Dosage: 7.5 G

REACTIONS (2)
  - Feeling abnormal [Unknown]
  - Cognitive disorder [Unknown]
